FAERS Safety Report 16733171 (Version 2)
Quarter: 2019Q3

REPORT INFORMATION
  Report Type: Spontaneous
  Country: JP (occurrence: JP)
  Receive Date: 20190823
  Receipt Date: 20190906
  Transmission Date: 20191005
  Serious: Yes (Other)
  Sender: FDA-Public Use
  Company Number: JP-REGENERON PHARMACEUTICALS, INC.-2019-48707

PATIENT

DRUGS (18)
  1. EYLEA [Suspect]
     Active Substance: AFLIBERCEPT
     Dosage: ONCE, RIGHT EYE
     Route: 031
     Dates: start: 20181026, end: 20181026
  2. EYLEA [Suspect]
     Active Substance: AFLIBERCEPT
     Dosage: ONCE, RIGHT EYE
     Route: 031
     Dates: start: 20190419, end: 20190419
  3. EYLEA [Suspect]
     Active Substance: AFLIBERCEPT
     Dosage: ONCE, RIGHT EYE
     Route: 031
     Dates: start: 20180928, end: 20180928
  4. EYLEA [Suspect]
     Active Substance: AFLIBERCEPT
     Dosage: ONCE, LEFT EYE
     Route: 031
     Dates: start: 20181105, end: 20181105
  5. EYLEA [Suspect]
     Active Substance: AFLIBERCEPT
     Dosage: ONCE, LEFT EYE
     Route: 031
     Dates: start: 20181207, end: 20181207
  6. EYLEA [Suspect]
     Active Substance: AFLIBERCEPT
     Dosage: ONCE, LEFTT EYE
     Route: 031
     Dates: start: 20190225, end: 20190225
  7. EYLEA [Suspect]
     Active Substance: AFLIBERCEPT
     Indication: AGE-RELATED MACULAR DEGENERATION
     Dosage: ONCE, LEFT EYE
     Route: 031
     Dates: start: 20180803, end: 20180803
  8. EYLEA [Suspect]
     Active Substance: AFLIBERCEPT
     Dosage: ONCE, LEFT EYE
     Route: 031
     Dates: start: 20181005, end: 20181005
  9. EYLEA [Suspect]
     Active Substance: AFLIBERCEPT
     Dosage: ONCE, RIGHT EYE
     Route: 031
     Dates: start: 20181128, end: 20181128
  10. EYLEA [Suspect]
     Active Substance: AFLIBERCEPT
     Dosage: ONCE, RIGHT EYE
     Route: 031
     Dates: start: 20190204, end: 20190204
  11. EYLEA [Suspect]
     Active Substance: AFLIBERCEPT
     Dosage: ONCE, RIGHT EYE
     Route: 031
     Dates: start: 20181228, end: 20181228
  12. EYLEA [Suspect]
     Active Substance: AFLIBERCEPT
     Indication: CHOROIDAL NEOVASCULARISATION
     Dosage: ONCE, LEFT EYE
     Route: 031
     Dates: start: 20180903, end: 20180903
  13. EYLEA [Suspect]
     Active Substance: AFLIBERCEPT
     Dosage: ONCE, LEFT EYE
     Route: 031
     Dates: start: 20190403, end: 20190403
  14. ADONA (AC-17) [Concomitant]
     Indication: PRODUCT USED FOR UNKNOWN INDICATION
     Dosage: DAILY DOSE 90 MG
     Route: 048
     Dates: start: 20180727
  15. KALLIDINOGENASE [Concomitant]
     Active Substance: KALLIDINOGENASE
     Indication: PRODUCT USED FOR UNKNOWN INDICATION
     Dosage: DAILY DOSE 150 U
     Route: 048
     Dates: start: 20180727
  16. EYLEA [Suspect]
     Active Substance: AFLIBERCEPT
     Dosage: ONCE, LEFT EYE
     Route: 031
     Dates: start: 20190605, end: 20190605
  17. EYLEA [Suspect]
     Active Substance: AFLIBERCEPT
     Dosage: ONCE, RIGHT EYE
     Route: 031
     Dates: start: 20190624, end: 20190624
  18. EYLEA [Suspect]
     Active Substance: AFLIBERCEPT
     Dosage: ONCE, LEFT EYE
     Route: 031
     Dates: start: 20190802, end: 20190802

REACTIONS (1)
  - Optic ischaemic neuropathy [Recovered/Resolved]

NARRATIVE: CASE EVENT DATE: 20190802
